FAERS Safety Report 5992982-1 (Version None)
Quarter: 2008Q4

REPORT INFORMATION
  Report Type: 
  Country: None (occurrence: None)
  Receive Date: 20081210
  Receipt Date: 20081210
  Transmission Date: 20090506
  Serious: No
  Sender: FDA-Public Use
  Company Number: None

PATIENT
  Age: 67 Year
  Sex: Male
  Weight: 74.8435 kg

DRUGS (1)
  1. -POTASSIUM CHLORIDE ER- POT CHLOR ER TABS 10 MEQ SCHERING - TAB INPRIN [Suspect]
     Indication: BLOOD POTASSIUM DECREASED
     Dosage: 10 MEQ BID PO
     Route: 048
     Dates: start: 20081203, end: 20081209

REACTIONS (4)
  - DYSGEUSIA [None]
  - DYSPHAGIA [None]
  - MUSCLE SPASMS [None]
  - PRODUCT QUALITY ISSUE [None]
